FAERS Safety Report 16029817 (Version 1)
Quarter: 2019Q1

REPORT INFORMATION
  Report Type: Report from Study
  Country: CN (occurrence: CN)
  Receive Date: 20190304
  Receipt Date: 20190304
  Transmission Date: 20190418
  Serious: Yes (Other)
  Sender: FDA-Public Use
  Company Number: CN-PFIZER INC-2019090949

PATIENT
  Sex: Female

DRUGS (5)
  1. DEXAMETHASONE. [Concomitant]
     Active Substance: DEXAMETHASONE
     Dosage: 15 MG, GIVEN IN 12 AND 6 HOURS BEFORE PACLITAXEL CHEMOTHERAPY
     Route: 048
  2. DIPHENHYDRAMINE. [Concomitant]
     Active Substance: DIPHENHYDRAMINE
     Dosage: 25 MG, 30 MINUTES BEFORE CHEMOTHERAPY
     Route: 030
  3. CIMETIDINE [Concomitant]
     Active Substance: CIMETIDINE
     Dosage: 300 MG, 30 MINUTES BEFORE CHEMOTHERAPY
     Route: 041
  4. CARBOPLATIN. [Suspect]
     Active Substance: CARBOPLATIN
     Indication: OVARIAN CANCER
     Dosage: 400 MG/M2, CYCLIC (3 WEEKS WERE A TREATMENT COURSE, AND CONTINUOUS 2 TREATMENT COURSES WERE PROVIDED
     Route: 041
  5. PACLITAXEL. [Suspect]
     Active Substance: PACLITAXEL
     Indication: OVARIAN CANCER
     Dosage: 135 MG/M2, CYCLIC (3 WEEKS WERE A TREATMENT COURSE, AND CONTINUOUS 2 TREATMENT COURSES WERE PROVIDED
     Route: 041

REACTIONS (1)
  - Renal impairment [Unknown]
